FAERS Safety Report 6576720-X (Version None)
Quarter: 2010Q1

REPORT INFORMATION
  Report Type: 
  Country: None (occurrence: None)
  Receive Date: 20100210
  Receipt Date: 20100202
  Transmission Date: 20100710
  Serious: Yes (Hospitalization)
  Sender: FDA-Public Use
  Company Number: CH-ROCHE-682504

PATIENT
  Age: 53 Year
  Sex: Female

DRUGS (2)
  1. BEVACIZUMAB [Suspect]
     Dosage: DAY 1. DATE OF LAST DOSE PRIOR TO SAE: 14 JAN 2010. TEMPORARILY DISCONTINUED
     Route: 042
     Dates: start: 20080925
  2. TEMOZOLOMIDE [Suspect]
     Dosage: DAY 1 - 7. LAST DOSE PRIOR TO SAE: 20 JAN 2010
     Route: 048
     Dates: start: 20080925

REACTIONS (1)
  - ATRIAL FIBRILLATION [None]
